FAERS Safety Report 8702169 (Version 1)
Quarter: 2012Q4

REPORT INFORMATION
  Report Type: 
  Country: US (occurrence: US)
  Receive Date: 20120829
  Receipt Date: 20120829
  Transmission Date: 20130627
  Serious: Yes (Death)
  Sender: FDA-Public Use
  Company Number: US-009507513-85010321

PATIENT

DRUGS (3)
  1. ELAVIL [Suspect]
     Route: 048
  2. DORIDEN [Concomitant]
     Route: 048
  3. ALCOHOL [Concomitant]
     Route: 048

REACTIONS (1)
  - Death [Fatal]
